FAERS Safety Report 8271570-0 (Version None)
Quarter: 2012Q2

REPORT INFORMATION
  Report Type: 
  Country: None (occurrence: None)
  Receive Date: 20120410
  Receipt Date: 20120405
  Transmission Date: 20120825
  Serious: Yes (Hospitalization)
  Sender: FDA-Public Use
  Company Number: US-GLAXOSMITHKLINE-A0794172A

PATIENT
  Sex: Male
  Weight: 101.4 kg

DRUGS (5)
  1. GLUCOTROL [Concomitant]
  2. GLUCOPHAGE [Concomitant]
  3. DILTIAZEM HCL [Concomitant]
  4. AVANDIA [Suspect]
     Indication: TYPE 2 DIABETES MELLITUS
     Dosage: 8MG PER DAY
     Route: 048
     Dates: start: 20050101, end: 20070625
  5. ZOCOR [Concomitant]

REACTIONS (3)
  - PERICARDIAL EFFUSION [None]
  - CARDIAC DISORDER [None]
  - ATRIAL FIBRILLATION [None]
